FAERS Safety Report 9029134 (Version 1)
Quarter: 2013Q1

REPORT INFORMATION
  Report Type: Spontaneous
  Country: US (occurrence: US)
  Receive Date: 20130124
  Receipt Date: 20130124
  Transmission Date: 20140127
  Serious: No
  Sender: FDA-Public Use
  Company Number: US-ASTRAZENECA-2013SE04027

PATIENT
  Age: 86 Year
  Sex: Female

DRUGS (1)
  1. ARIMIDEX [Suspect]
     Route: 048
     Dates: start: 2012

REACTIONS (9)
  - Cardiac disorder [Unknown]
  - Chest pain [Unknown]
  - Cough [Unknown]
  - Dyspepsia [Unknown]
  - Eating disorder [Unknown]
  - Gastrooesophageal reflux disease [Unknown]
  - Oropharyngeal pain [Unknown]
  - Pulmonary hypertension [Unknown]
  - Osteoporosis [Unknown]
